FAERS Safety Report 11691262 (Version 1)
Quarter: 2015Q4

REPORT INFORMATION
  Report Type: Spontaneous
  Country: US (occurrence: US)
  Receive Date: 20151102
  Receipt Date: 20151102
  Transmission Date: 20160304
  Serious: Yes (Hospitalization, Other)
  Sender: FDA-Public Use
  Company Number: US-ASTRAZENECA-2015SF04543

PATIENT
  Age: 703 Month
  Sex: Female
  Weight: 90.3 kg

DRUGS (12)
  1. SEROQUEL [Suspect]
     Active Substance: QUETIAPINE FUMARATE
     Indication: SLEEP DISORDER
     Route: 048
     Dates: start: 201306, end: 20150901
  2. NORVASC [Concomitant]
     Active Substance: AMLODIPINE BESYLATE
     Indication: CARDIAC DISORDER
     Route: 048
     Dates: start: 2009
  3. CELEXA [Concomitant]
     Active Substance: CITALOPRAM HYDROBROMIDE
     Dosage: UNKNOWN
     Route: 048
  4. SEROQUEL [Suspect]
     Active Substance: QUETIAPINE FUMARATE
     Indication: SLEEP DISORDER
     Route: 048
     Dates: start: 201206, end: 201306
  5. LASIX [Concomitant]
     Active Substance: FUROSEMIDE
     Indication: CARDIAC FAILURE CONGESTIVE
     Route: 048
     Dates: start: 2009
  6. WELLBUTRIN [Concomitant]
     Active Substance: BUPROPION HYDROCHLORIDE
     Dosage: UNKNOWN
     Route: 048
  7. COZAAR [Concomitant]
     Active Substance: LOSARTAN POTASSIUM
     Indication: CARDIAC DISORDER
     Route: 048
     Dates: start: 2009
  8. SEROQUEL [Suspect]
     Active Substance: QUETIAPINE FUMARATE
     Indication: SLEEP DISORDER
     Route: 048
     Dates: start: 20150901, end: 20151001
  9. WARFARIN [Concomitant]
     Active Substance: WARFARIN
     Indication: ANTICOAGULANT THERAPY
     Route: 048
     Dates: start: 2009
  10. POTASSIUM [Concomitant]
     Active Substance: POTASSIUM
     Indication: ILL-DEFINED DISORDER
     Route: 048
     Dates: start: 2009
  11. ATENOLOL. [Suspect]
     Active Substance: ATENOLOL
     Indication: CARDIAC DISORDER
     Route: 048
     Dates: start: 2009
  12. MINIPRESS [Concomitant]
     Active Substance: PRAZOSIN HYDROCHLORIDE
     Indication: CARDIAC DISORDER
     Dosage: UNKNOWN
     Route: 048

REACTIONS (22)
  - Thirst [Unknown]
  - Product use issue [Unknown]
  - Dyspepsia [Unknown]
  - Weight decreased [Unknown]
  - Malaise [Unknown]
  - Pollakiuria [Unknown]
  - Drug withdrawal syndrome [Unknown]
  - Off label use [Unknown]
  - Libido decreased [Unknown]
  - Dizziness [Unknown]
  - Cataract [Unknown]
  - Hyperhidrosis [Unknown]
  - Nausea [Unknown]
  - Constipation [Unknown]
  - Seizure [Unknown]
  - Tremor [Unknown]
  - Weight increased [Unknown]
  - Decreased appetite [Unknown]
  - Dry mouth [Unknown]
  - Vision blurred [Unknown]
  - Headache [Unknown]
  - Depression [Unknown]

NARRATIVE: CASE EVENT DATE: 201206
